FAERS Safety Report 4429444-9 (Version None)
Quarter: 2004Q3

REPORT INFORMATION
  Report Type: 
  Country: None (occurrence: None)
  Receive Date: 20040816
  Receipt Date: 20040730
  Transmission Date: 20050211
  Serious: Yes (Death, Hospitalization)
  Sender: FDA-Public Use
  Company Number: 04P-056-0268833-00

PATIENT
  Age: 74 Year
  Sex: Female

DRUGS (1)
  1. DEPAKENE [Suspect]
     Indication: ELECTROENCEPHALOGRAM
     Dosage: 500 MG, 1 IN 1 D, PER ORAL
     Route: 048
     Dates: start: 20040415, end: 20040610

REACTIONS (8)
  - ACIDOSIS [None]
  - CONFUSIONAL STATE [None]
  - ELECTROENCEPHALOGRAM ABNORMAL [None]
  - FLUID RETENTION [None]
  - HYPONATRAEMIA [None]
  - OLIGURIA [None]
  - PULMONARY OEDEMA [None]
  - SUDDEN DEATH [None]
